FAERS Safety Report 4674913-X (Version None)
Quarter: 2005Q2

REPORT INFORMATION
  Report Type: 
  Country: None (occurrence: None)
  Receive Date: 20050524
  Receipt Date: 20050512
  Transmission Date: 20051028
  Serious: Yes (Hospitalization)
  Sender: FDA-Public Use
  Company Number: 2005-00878

PATIENT
  Age: 66 Year
  Sex: Male

DRUGS (1)
  1. IMMUCYST [Suspect]
     Indication: BLADDER CANCER
     Dosage: I.VES., BLADDER
     Dates: start: 20021101

REACTIONS (2)
  - BOVINE TUBERCULOSIS [None]
  - LUNG DISORDER [None]
